FAERS Safety Report 4973344-2 (Version None)
Quarter: 2006Q2

REPORT INFORMATION
  Report Type: 
  Country: None (occurrence: None)
  Receive Date: 20060414
  Receipt Date: 20060410
  Transmission Date: 20061013
  Serious: Yes (Hospitalization)
  Sender: FDA-Public Use
  Company Number: ES-BOEHRINGER INGELHEIM PHARMACEUTICALS, INC.-2006-DE-01894GD

PATIENT
  Age: 79 Year
  Sex: Female

DRUGS (2)
  1. ASASANTIN [Suspect]
     Dosage: 150 MG ACETYLSALICYLIC ACID/225 MG DIPYRIDAMOLE
     Route: 048
  2. CLAMOXYL [Suspect]

REACTIONS (2)
  - GASTRIC MUCOSAL LESION [None]
  - HAEMORRHAGE [None]
